FAERS Safety Report 10304817 (Version 1)
Quarter: 2014Q3

REPORT INFORMATION
  Report Type: Report from Study
  Country: US (occurrence: US)
  Receive Date: 20140715
  Receipt Date: 20140715
  Transmission Date: 20150326
  Serious: Yes (Other)
  Sender: FDA-Public Use
  Company Number: PHEH2014US013936

PATIENT
  Sex: Female

DRUGS (1)
  1. GILENYA [Suspect]
     Active Substance: FINGOLIMOD HYDROCHLORIDE
     Indication: MULTIPLE SCLEROSIS
     Dosage: 0.5 MG, DAILY
     Route: 048

REACTIONS (8)
  - Fatigue [Not Recovered/Not Resolved]
  - Depression [Unknown]
  - Limb discomfort [Unknown]
  - Balance disorder [Unknown]
  - Constipation [Unknown]
  - Vision blurred [Unknown]
  - Micturition urgency [Unknown]
  - Paraesthesia [Unknown]
